FAERS Safety Report 8428974-2 (Version None)
Quarter: 2012Q2

REPORT INFORMATION
  Report Type: 
  Country: None (occurrence: None)
  Receive Date: 20120612
  Receipt Date: 20120531
  Transmission Date: 20120825
  Serious: Yes (Other)
  Sender: FDA-Public Use
  Company Number: FR-VERTEX PHARMACEUTICALS INC.-000000000000000838

PATIENT
  Age: 5 Decade
  Sex: Male

DRUGS (6)
  1. INCIVO [Suspect]
     Indication: HEPATITIS C
     Dosage: DOSAGE FORM: TABLET, 12 WEEKS COMPLETED
  2. RIBAVIRIN [Concomitant]
     Indication: HEPATITIS C
  3. NORVIR [Concomitant]
     Indication: HIV INFECTION
  4. REYATAZ [Concomitant]
     Indication: HIV INFECTION
  5. PEG-INTRON [Concomitant]
     Indication: HEPATITIS C
  6. TRUVADA [Concomitant]
     Indication: HIV INFECTION

REACTIONS (3)
  - ASPARTATE AMINOTRANSFERASE INCREASED [None]
  - ALANINE AMINOTRANSFERASE INCREASED [None]
  - OFF LABEL USE [None]
